FAERS Safety Report 17390375 (Version 2)
Quarter: 2020Q1

REPORT INFORMATION
  Report Type: Report from Study
  Country: MX (occurrence: MX)
  Receive Date: 20200207
  Receipt Date: 20200217
  Transmission Date: 20200409
  Serious: Yes (Other)
  Sender: FDA-Public Use
  Company Number: NVSC2020MX029154

PATIENT
  Age: 45 Year
  Sex: Female
  Weight: 84 kg

DRUGS (4)
  1. GALVUS MET [Suspect]
     Active Substance: METFORMIN HYDROCHLORIDE\VILDAGLIPTIN
     Dosage: 1 DF, BID (50/1000 MG)
     Route: 048
     Dates: start: 202001
  2. PREGABALINE [Concomitant]
     Active Substance: PREGABALIN
     Indication: DERMATITIS
     Dosage: 1 DF, QD (NIGHT)
     Route: 065
  3. GLIMEPIRIDE. [Concomitant]
     Active Substance: GLIMEPIRIDE
     Indication: DIABETES MELLITUS
     Dosage: 1 DF, QD
     Route: 065
  4. GALVUS MET [Suspect]
     Active Substance: METFORMIN HYDROCHLORIDE\VILDAGLIPTIN
     Indication: DIABETES MELLITUS
     Dosage: 1 DF, BID (850/50 MG))
     Route: 048
     Dates: start: 201908, end: 201911

REACTIONS (7)
  - Burns second degree [Recovering/Resolving]
  - Salmonellosis [Unknown]
  - Blood glucose increased [Recovered/Resolved]
  - Oedema peripheral [Unknown]
  - Product use in unapproved indication [Unknown]
  - Erythema [Unknown]
  - Drug ineffective [Unknown]

NARRATIVE: CASE EVENT DATE: 201910
